FAERS Safety Report 18147664 (Version 10)
Quarter: 2025Q3

REPORT INFORMATION
  Report Type: Report from Study
  Country: US (occurrence: US)
  Receive Date: 20200813
  Receipt Date: 20250714
  Transmission Date: 20251021
  Serious: Yes (Other)
  Sender: TAKEDA
  Company Number: US-SHIRE-US202025886

PATIENT
  Age: 13 Year
  Sex: Male

DRUGS (5)
  1. ADVATE [Suspect]
     Active Substance: ANTIHEMOPHILIC FACTOR, HUMAN RECOMBINANT
     Indication: Haemorrhage
  2. ADVATE [Suspect]
     Active Substance: ANTIHEMOPHILIC FACTOR, HUMAN RECOMBINANT
  3. ADVATE [Suspect]
     Active Substance: ANTIHEMOPHILIC FACTOR, HUMAN RECOMBINANT
  4. ADVATE [Suspect]
     Active Substance: ANTIHEMOPHILIC FACTOR, HUMAN RECOMBINANT
  5. ADVATE [Suspect]
     Active Substance: ANTIHEMOPHILIC FACTOR, HUMAN RECOMBINANT

REACTIONS (9)
  - Haemarthrosis [Not Recovered/Not Resolved]
  - Genital haemorrhage [Unknown]
  - Haemorrhage [Not Recovered/Not Resolved]
  - Mouth haemorrhage [Recovered/Resolved]
  - Muscle haemorrhage [Unknown]
  - Joint swelling [Not Recovered/Not Resolved]
  - Extra dose administered [Unknown]
  - Mouth injury [Unknown]
  - Limb injury [Unknown]

NARRATIVE: CASE EVENT DATE: 20200625
